FAERS Safety Report 10475259 (Version 1)
Quarter: 2014Q3

REPORT INFORMATION
  Report Type: Spontaneous
  Country: US (occurrence: None)
  Receive Date: 20140924
  Receipt Date: 20140924
  Transmission Date: 20150326
  Serious: Yes (Hospitalization)
  Sender: FDA-Public Use
  Company Number: None

PATIENT
  Age: 81 Year
  Sex: Female
  Weight: 72.7 kg

DRUGS (21)
  1. MIRALAX [Concomitant]
     Active Substance: POLYETHYLENE GLYCOL 3350
  2. FLONASE [Concomitant]
     Active Substance: FLUTICASONE PROPIONATE
  3. VITAMIN D [Concomitant]
     Active Substance: CHOLECALCIFEROL
  4. NEURONTIN [Suspect]
     Active Substance: GABAPENTIN
     Indication: NECK PAIN
     Dosage: 300MG?QID?PO?CHRONIC
     Route: 048
  5. XANAX [Concomitant]
     Active Substance: ALPRAZOLAM
  6. ATROVENT [Concomitant]
     Active Substance: IPRATROPIUM BROMIDE
  7. REMERON [Concomitant]
     Active Substance: MIRTAZAPINE
  8. LOSARTAN [Concomitant]
     Active Substance: LOSARTAN
  9. LOPRESSOR [Concomitant]
     Active Substance: METOPROLOL TARTRATE
  10. NEURONTIN [Suspect]
     Active Substance: GABAPENTIN
     Indication: MUSCULOSKELETAL PAIN
     Dosage: 300MG?QID?PO?CHRONIC
     Route: 048
  11. NORVASC [Concomitant]
     Active Substance: AMLODIPINE BESYLATE
  12. VOLTAREN [Concomitant]
     Active Substance: DICLOFENAC SODIUM
  13. APAP [Concomitant]
     Active Substance: ACETAMINOPHEN
  14. PROTONIX [Concomitant]
     Active Substance: PANTOPRAZOLE SODIUM
  15. PRAVASTATIN [Concomitant]
     Active Substance: PRAVASTATIN\PRAVASTATIN SODIUM
  16. BUPRENORPHINE [Suspect]
     Active Substance: BUPRENORPHINE
     Dosage: 20MCG/HR?Q WED?TRANSDERMAL?CHRONIC
     Route: 062
  17. HCTZ [Concomitant]
     Active Substance: HYDROCHLOROTHIAZIDE
  18. FLOMAX [Concomitant]
     Active Substance: TAMSULOSIN HYDROCHLORIDE
  19. FLOMAX [Concomitant]
     Active Substance: TAMSULOSIN HYDROCHLORIDE
  20. ASA [Concomitant]
     Active Substance: ASPIRIN
  21. PRAVASTATIN [Concomitant]
     Active Substance: PRAVASTATIN\PRAVASTATIN SODIUM

REACTIONS (2)
  - Mental status changes [None]
  - Urinary tract infection [None]

NARRATIVE: CASE EVENT DATE: 20140415
